FAERS Safety Report 9134799 (Version 1)
Quarter: 2013Q1

REPORT INFORMATION
  Report Type: Spontaneous
  Country: US (occurrence: US)
  Receive Date: 20130304
  Receipt Date: 20130304
  Transmission Date: 20140127
  Serious: Yes (Other)
  Sender: FDA-Public Use
  Company Number: US-TEVA-388862USA

PATIENT
  Sex: Male

DRUGS (5)
  1. FOLINIC ACID [Suspect]
     Indication: COLORECTAL CANCER METASTATIC
     Dosage: 1 DOSAGE FORMS DAILY; EVERY CYCLE
     Route: 042
     Dates: start: 201212
  2. ZIV-AFLIBERCEPT [Suspect]
     Indication: COLORECTAL CANCER METASTATIC
     Dosage: 630 MILLIGRAM DAILY; EVERY CYCLE
     Route: 042
     Dates: start: 201212, end: 201212
  3. FLUOROURACIL [Suspect]
     Indication: COLORECTAL CANCER METASTATIC
     Dosage: 1 DOSAGE FORMS DAILY; EVERY CYCLE
     Route: 042
     Dates: start: 201212
  4. OXALIPLATIN [Suspect]
     Indication: COLORECTAL CANCER METASTATIC
     Dosage: 1 DOSAGE FORMS DAILY; EVERY CYCLE
     Route: 042
     Dates: start: 201212
  5. IRINOTECAN [Suspect]

REACTIONS (5)
  - Colorectal cancer metastatic [Unknown]
  - Proteinuria [Unknown]
  - Haematuria [Unknown]
  - Blood creatinine increased [Unknown]
  - Hypertension [Unknown]
